FAERS Safety Report 14379726 (Version 4)
Quarter: 2020Q1

REPORT INFORMATION
  Report Type: Report from Study
  Country: US (occurrence: US)
  Receive Date: 20180112
  Receipt Date: 20200122
  Transmission Date: 20200409
  Serious: Yes (Hospitalization, Other)
  Sender: FDA-Public Use
  Company Number: US-TEVA-2018-US-844522

PATIENT
  Age: 54 Year
  Sex: Female

DRUGS (1)
  1. COPAXONE [Suspect]
     Active Substance: GLATIRAMER ACETATE
     Indication: MULTIPLE SCLEROSIS
     Route: 058
     Dates: start: 20160513

REACTIONS (10)
  - Multiple sclerosis relapse [Unknown]
  - Hypersensitivity [Unknown]
  - Pain in extremity [Unknown]
  - JC virus infection [Unknown]
  - Swollen tongue [Unknown]
  - Obstructive airways disorder [Unknown]
  - Lip swelling [Unknown]
  - Tongue biting [Unknown]
  - Muscular weakness [Unknown]
  - Progressive multifocal leukoencephalopathy [Unknown]

NARRATIVE: CASE EVENT DATE: 20180103
